FAERS Safety Report 5974204-0 (Version None)
Quarter: 2008Q4

REPORT INFORMATION
  Report Type: 
  Country: None (occurrence: None)
  Receive Date: 20081125
  Receipt Date: 20081110
  Transmission Date: 20090506
  Serious: Yes (Death, Hospitalization, Other)
  Sender: FDA-Public Use
  Company Number: 54294

PATIENT
  Age: 53 Year
  Sex: Female

DRUGS (1)
  1. AMIODARONE HCL [Suspect]
     Indication: VENTRICULAR TACHYCARDIA
     Dosage: 600 MG/DAY FOLLOWED BY 300MG/DAY

REACTIONS (3)
  - GOITRE [None]
  - HYPERTHYROIDISM [None]
  - THYROTOXIC CRISIS [None]
